FAERS Safety Report 8263954-1 (Version None)
Quarter: 2012Q2

REPORT INFORMATION
  Report Type: 
  Country: None (occurrence: None)
  Receive Date: 20120406
  Receipt Date: 20120328
  Transmission Date: 20120825
  Serious: Yes (Life-Threatening, Hospitalization)
  Sender: FDA-Public Use
  Company Number: 2008BI013093

PATIENT
  Age: 50 Year
  Sex: Female
  Weight: 60 kg

DRUGS (4)
  1. CORTICOID [Concomitant]
     Indication: MULTIPLE SCLEROSIS
     Route: 048
     Dates: start: 20020801
  2. TYSABRI [Suspect]
     Indication: RELAPSING-REMITTING MULTIPLE SCLEROSIS
     Route: 042
     Dates: start: 20080513, end: 20080101
  3. IMMUNE GLOBULIN (HUMAN) [Concomitant]
     Indication: PURPURA
     Route: 042
     Dates: start: 19970701
  4. VINCRISTINE [Concomitant]
     Indication: PURPURA
     Dates: start: 19970701

REACTIONS (2)
  - ANAEMIA HAEMOLYTIC AUTOIMMUNE [None]
  - TINNITUS [None]
